FAERS Safety Report 6931499-4 (Version None)
Quarter: 2010Q3

REPORT INFORMATION
  Report Type: 
  Country: None (occurrence: None)
  Receive Date: 20100816
  Receipt Date: 20100810
  Transmission Date: 20110219
  Serious: Yes (Hospitalization)
  Sender: FDA-Public Use
  Company Number: WAES 1008USA01083

PATIENT
  Age: 60 Year
  Sex: Male
  Weight: 105.2345 kg

DRUGS (3)
  1. COZAAR [Suspect]
     Indication: HYPERTENSION
     Dosage: 50 MG/DAILY/PO
     Route: 048
  2. STUDY DRUG (UNSPECIFIED) UNK [Suspect]
     Indication: HYPERTENSION
  3. EXCEDRIN (ACETAMINOPHEN (+) ASPI [Concomitant]

REACTIONS (8)
  - ATELECTASIS [None]
  - CELLULITIS [None]
  - DECREASED APPETITE [None]
  - DIZZINESS [None]
  - HEADACHE [None]
  - PNEUMONIA [None]
  - SINUS TACHYCARDIA [None]
  - SYSTEMIC INFLAMMATORY RESPONSE SYNDROME [None]
